FAERS Safety Report 6385492-3 (Version None)
Quarter: 2009Q4

REPORT INFORMATION
  Report Type: 
  Country: None (occurrence: None)
  Receive Date: 20091002
  Receipt Date: 20090601
  Transmission Date: 20100525
  Serious: Yes (Other)
  Sender: FDA-Public Use
  Company Number: US-ASTRAZENECA-2008UW19263

PATIENT
  Age: 61 Year
  Sex: Female
  Weight: 104.3 kg

DRUGS (15)
  1. ARIMIDEX [Suspect]
     Indication: BREAST CANCER
     Route: 048
     Dates: start: 20060101, end: 20090501
  2. LEVOTHYROXINE SODIUM [Concomitant]
     Route: 048
  3. DIAZIDE [Concomitant]
     Route: 048
  4. TRIAMYSTEIN [Concomitant]
     Route: 065
  5. GLUCOVANCE [Concomitant]
  6. METFORMIN [Concomitant]
     Route: 048
  7. GLYBURIDE [Concomitant]
  8. GABAPINTIN [Concomitant]
     Route: 048
  9. AMITRIPTYLINE [Concomitant]
  10. WARFARIN SODIUM [Concomitant]
  11. CERTRALINE [Concomitant]
     Route: 065
  12. HYDROCODEINE [Concomitant]
     Route: 065
  13. INSULIN [Concomitant]
     Route: 058
  14. SIMVASTATIN [Concomitant]
     Route: 048
  15. NEURONTIN [Concomitant]

REACTIONS (4)
  - ABDOMINAL DISCOMFORT [None]
  - ANKLE FRACTURE [None]
  - FALL [None]
  - PRESYNCOPE [None]
